FAERS Safety Report 16065295 (Version 1)
Quarter: 2019Q1

REPORT INFORMATION
  Report Type: Spontaneous
  Country: US (occurrence: US)
  Receive Date: 20190211
  Receipt Date: 20190211
  Transmission Date: 20190418
  Serious: No
  Sender: FDA-Public Use
  Company Number: None

PATIENT
  Age: 58 Year
  Sex: Male

DRUGS (1)
  1. BIKTARVY [Suspect]
     Active Substance: BICTEGRAVIR SODIUM\EMTRICITABINE\TENOFOVIR ALAFENAMIDE FUMARATE
     Indication: HIV INFECTION
     Dosage: 50/200/25 MG, DAILY, BY MOUTH
     Route: 048
     Dates: start: 20181203

REACTIONS (4)
  - Depressive symptom [None]
  - Somnolence [None]
  - Memory impairment [None]
  - Condition aggravated [None]

NARRATIVE: CASE EVENT DATE: 201901
